FAERS Safety Report 20369143 (Version 1)
Quarter: 2022Q1

REPORT INFORMATION
  Report Type: Spontaneous
  Country: NL (occurrence: NL)
  Receive Date: 20220124
  Receipt Date: 20220124
  Transmission Date: 20220423
  Serious: Yes (Other)
  Sender: FDA-Public Use
  Company Number: None

PATIENT
  Sex: Female

DRUGS (1)
  1. DICLOFENAC POTASSIUM [Suspect]
     Active Substance: DICLOFENAC POTASSIUM
     Indication: Pain
     Dosage: 25 MG (COATED TABLET, 25 MG (MILLIGRAMS))
     Dates: start: 2020

REACTIONS (2)
  - Suicidal ideation [Recovered/Resolved]
  - Panic disorder [Recovered/Resolved]
